FAERS Safety Report 22249955 (Version 1)
Quarter: 2023Q2

REPORT INFORMATION
  Report Type: Spontaneous
  Country: US (occurrence: US)
  Receive Date: 20230425
  Receipt Date: 20230425
  Transmission Date: 20230721
  Serious: No
  Sender: FDA-Public Use
  Company Number: US-009507513-2304USA001242

PATIENT
  Sex: Male

DRUGS (1)
  1. VERQUVO [Suspect]
     Active Substance: VERICIGUAT
     Dosage: UNK
     Route: 048
     Dates: start: 20230321

REACTIONS (2)
  - Dehydration [Unknown]
  - Blood pressure systolic abnormal [Unknown]

NARRATIVE: CASE EVENT DATE: 20230101
